FAERS Safety Report 6566169-8 (Version None)
Quarter: 2010Q1

REPORT INFORMATION
  Report Type: 
  Country: None (occurrence: None)
  Receive Date: 20100127
  Receipt Date: 20100113
  Transmission Date: 20100710
  Serious: Yes (Death)
  Sender: FDA-Public Use
  Company Number: ALK_01103_2009

PATIENT
  Sex: Male

DRUGS (5)
  1. VIVITROL [Suspect]
     Indication: ALCOHOLISM
     Dosage: INTRAMUSCULAR
     Route: 030
     Dates: start: 20091207, end: 20091207
  2. NALTREXONE HYDROCHLORIDE [Concomitant]
  3. TWINRIX [Concomitant]
  4. INFLUENZA VACCINE [Concomitant]
  5. SEIZURE MEDICATIONS [Concomitant]

REACTIONS (4)
  - PULMONARY EMBOLISM [None]
  - RESUSCITATION [None]
  - TREATMENT NONCOMPLIANCE [None]
  - UNRESPONSIVE TO STIMULI [None]
